FAERS Safety Report 24133665 (Version 1)
Quarter: 2024Q3

REPORT INFORMATION
  Report Type: Report from Study
  Country: US (occurrence: US)
  Receive Date: 20240724
  Receipt Date: 20240724
  Transmission Date: 20241016
  Serious: Yes (Hospitalization)
  Sender: XERIS PHARMACEUTICALS
  Company Number: US-BRIAN CONNER SVP QUALITY AND CHIEF COMPLIANCE OFFICER-2023XER02272

PATIENT
  Sex: Female
  Weight: 64.399 kg

DRUGS (21)
  1. RECORLEV [Suspect]
     Active Substance: LEVOKETOCONAZOLE
     Indication: Cushing^s syndrome
     Dosage: UNK
     Route: 048
     Dates: start: 2023
  2. RECORLEV [Suspect]
     Active Substance: LEVOKETOCONAZOLE
     Dosage: 1.5 TABLETS (225 MG), 1X/DAY
     Route: 048
  3. RECORLEV [Suspect]
     Active Substance: LEVOKETOCONAZOLE
     Dosage: 1 TABLET (150 MG), 2X/DAY (1 TABLET IN THE MORNING AND 1 TABLET IN THE EVENING )
     Route: 048
     Dates: start: 20240221
  4. RECORLEV [Suspect]
     Active Substance: LEVOKETOCONAZOLE
     Dosage: 1 TABLET (150 MG), 2X/DAY
     Route: 048
  5. AMLODIPINE [Concomitant]
     Active Substance: AMLODIPINE BESYLATE
  6. METOPROLOL [Concomitant]
     Active Substance: METOPROLOL
  7. CLOPIDOGREL BISULFATE [Concomitant]
     Active Substance: CLOPIDOGREL BISULFATE
  8. CLONIDINE [Concomitant]
     Active Substance: CLONIDINE
  9. OLMESARTAN MEDOXOMIL [Concomitant]
     Active Substance: OLMESARTAN MEDOXOMIL
  10. SPIRONOLACTONE [Concomitant]
     Active Substance: SPIRONOLACTONE
  11. CHLORTHALIDONE [Concomitant]
     Active Substance: CHLORTHALIDONE
  12. FENOFIBRATE [Concomitant]
     Active Substance: FENOFIBRATE
  13. ATORVASTATIN [Concomitant]
     Active Substance: ATORVASTATIN
  14. ASPIRIN [Concomitant]
     Active Substance: ASPIRIN
  15. VITAMIN B12 [Concomitant]
     Active Substance: CYANOCOBALAMIN
  16. VITAMIN C [Concomitant]
     Active Substance: ASCORBIC ACID
  17. VITAMIN D3 [Concomitant]
     Active Substance: CHOLECALCIFEROL
  18. GLUCOSAMINE CHONDROITIN [CHONDROITIN SULFATE SODIUM;GLUCOSAMINE HYDROC [Concomitant]
  19. TYLENOL [Concomitant]
     Active Substance: ACETAMINOPHEN
     Dosage: UNK, AS NEEDED
  20. HYDRALAZINE HYDROCHLORIDE [Concomitant]
     Active Substance: HYDRALAZINE HYDROCHLORIDE
  21. MIRTAZAPINE [Concomitant]
     Active Substance: MIRTAZAPINE
     Dosage: UNK

REACTIONS (14)
  - Hospitalisation [Unknown]
  - Blood pressure fluctuation [Recovering/Resolving]
  - Abscess [Recovering/Resolving]
  - Glycosylated haemoglobin increased [Recovering/Resolving]
  - Hair growth abnormal [Not Recovered/Not Resolved]
  - Ingrowing nail [Recovering/Resolving]
  - Blood glucose increased [Not Recovered/Not Resolved]
  - Pollakiuria [Not Recovered/Not Resolved]
  - Drug effect less than expected [Not Recovered/Not Resolved]
  - Micturition urgency [Not Recovered/Not Resolved]
  - Alopecia [Not Recovered/Not Resolved]
  - Fatigue [Not Recovered/Not Resolved]
  - Nasal pruritus [Unknown]
  - Pruritus [Unknown]

NARRATIVE: CASE EVENT DATE: 20230101
